FAERS Safety Report 20186353 (Version 1)
Quarter: 2021Q4

REPORT INFORMATION
  Report Type: Spontaneous
  Country: US (occurrence: US)
  Receive Date: 20211215
  Receipt Date: 20211215
  Transmission Date: 20220303
  Serious: No
  Sender: FDA-Public Use
  Company Number: US-RECKITT BENCKISER HEALTHCARE INT LIMITED-RB-80652-2021

PATIENT
  Age: 76 Year
  Sex: Male

DRUGS (2)
  1. DELSYM COUGH PLUS SORE THROAT [Suspect]
     Active Substance: ACETAMINOPHEN\DEXTROMETHORPHAN HYDROBROMIDE
     Indication: Cough
     Dosage: 20 MILLILITER, SINGLE
     Route: 048
     Dates: start: 20201122, end: 20201122
  2. DELSYM COUGH PLUS SORE THROAT [Suspect]
     Active Substance: ACETAMINOPHEN\DEXTROMETHORPHAN HYDROBROMIDE
     Indication: Nasopharyngitis

REACTIONS (3)
  - Gastric disorder [Recovered/Resolved]
  - Drug ineffective [Recovered/Resolved]
  - Product complaint [Unknown]

NARRATIVE: CASE EVENT DATE: 20201122
